FAERS Safety Report 11903105 (Version 1)
Quarter: 2016Q1

REPORT INFORMATION
  Report Type: Spontaneous
  Country: US (occurrence: US)
  Receive Date: 20160108
  Receipt Date: 20160108
  Transmission Date: 20160526
  Serious: No
  Sender: FDA-Public Use
  Company Number: US-ASTRAZENECA-2015SF31756

PATIENT
  Sex: Male

DRUGS (1)
  1. BYDUREON [Suspect]
     Active Substance: EXENATIDE
     Indication: DIABETES MELLITUS
     Dosage: 2 ONCE A WEEK
     Route: 058

REACTIONS (5)
  - Injection site pain [Unknown]
  - Product quality issue [Unknown]
  - Device difficult to use [Unknown]
  - Injection site extravasation [Unknown]
  - Underdose [Unknown]
